FAERS Safety Report 7313817-0 (Version None)
Quarter: 2011Q1

REPORT INFORMATION
  Report Type: 
  Country: None (occurrence: None)
  Receive Date: 20110218
  Receipt Date: 20110218
  Transmission Date: 20110831
  Serious: Yes (Hospitalization)
  Sender: FDA-Public Use
  Company Number: None

PATIENT
  Sex: Male
  Weight: 78.6 kg

DRUGS (2)
  1. PEMETREXED [Suspect]
     Indication: NON-SMALL CELL LUNG CANCER
     Dosage: 500MG/M2 Q3WEEKS IV
     Route: 042
     Dates: start: 20100915, end: 20110202
  2. ERLOTINIB HYDROCHLORIDE [Suspect]
     Indication: NON-SMALL CELL LUNG CANCER
     Dosage: 150MG QD,DAYS 2-16/CYCLE PO
     Route: 048
     Dates: start: 20100916, end: 20110210

REACTIONS (12)
  - HYPOTENSION [None]
  - SEPSIS [None]
  - NECROSIS [None]
  - CELLULITIS [None]
  - HAEMOGLOBIN DECREASED [None]
  - PLATELET COUNT DECREASED [None]
  - DEHYDRATION [None]
  - ERYTHEMA [None]
  - WHITE BLOOD CELL COUNT INCREASED [None]
  - OEDEMA [None]
  - RASH VESICULAR [None]
  - HAEMATOCRIT DECREASED [None]
